FAERS Safety Report 15985148 (Version 2)
Quarter: 2019Q1

REPORT INFORMATION
  Report Type: Report from Study
  Country: US (occurrence: US)
  Receive Date: 20190220
  Receipt Date: 20190308
  Transmission Date: 20190418
  Serious: No
  Sender: FDA-Public Use
  Company Number: PHEH2019US007180

PATIENT
  Sex: Female

DRUGS (1)
  1. COSENTYX [Suspect]
     Active Substance: SECUKINUMAB
     Indication: PSORIASIS
     Dosage: 300 MG, (AT DAY 28 THEN EVERY 4WEEKS AS DIRECTED)
     Route: 058
     Dates: start: 201901

REACTIONS (4)
  - Fatigue [Unknown]
  - Vitamin B12 decreased [Unknown]
  - Pruritus [Unknown]
  - Dry skin [Unknown]
